FAERS Safety Report 18594071 (Version 1)
Quarter: 2020Q4

REPORT INFORMATION
  Report Type: Spontaneous
  Country: CN (occurrence: CN)
  Receive Date: 20201209
  Receipt Date: 20201209
  Transmission Date: 20210114
  Serious: Yes (Other)
  Sender: FDA-Public Use
  Company Number: CN-ROCHE-2726981

PATIENT
  Age: 4 Year
  Sex: Male
  Weight: 14.2 kg

DRUGS (1)
  1. AVASTIN [Suspect]
     Active Substance: BEVACIZUMAB
     Indication: MEDULLOBLASTOMA
     Route: 041
     Dates: start: 20200716, end: 20200716

REACTIONS (5)
  - Oedema [Recovering/Resolving]
  - Hypertension [Recovering/Resolving]
  - Off label use [Unknown]
  - Proteinuria [Recovering/Resolving]
  - Intentional product use issue [Unknown]

NARRATIVE: CASE EVENT DATE: 20201104
